FAERS Safety Report 5191006-6 (Version None)
Quarter: 2006Q4

REPORT INFORMATION
  Report Type: 
  Country: None (occurrence: None)
  Receive Date: 20061214
  Receipt Date: 20061207
  Transmission Date: 20070319
  Serious: Yes (Hospitalization)
  Sender: FDA-Public Use
  Company Number: HQWYE580107DEC06

PATIENT
  Age: 85 Year
  Sex: Male

DRUGS (1)
  1. CORDARONE [Suspect]
     Indication: ARRHYTHMIA
     Dosage: UNSPECIFIED; ORAL
     Route: 048

REACTIONS (2)
  - LUNG DISORDER [None]
  - PULMONARY MASS [None]
